FAERS Safety Report 5299395-9 (Version None)
Quarter: 2007Q2

REPORT INFORMATION
  Report Type: 
  Country: None (occurrence: None)
  Receive Date: 20070411
  Receipt Date: 20070411
  Transmission Date: 20071010
  Serious: Yes (Other)
  Sender: FDA-Public Use
  Company Number: None

PATIENT
  Age: 7 Year
  Sex: Male
  Weight: 25.3 kg

DRUGS (1)
  1. VALPROIC ACID [Suspect]
     Indication: ATTENTION DEFICIT/HYPERACTIVITY DISORDER
     Dosage: 250MG QD IN AM PO
     Route: 048
     Dates: start: 20070207, end: 20070212

REACTIONS (2)
  - ERECTION INCREASED [None]
  - RASH [None]
